FAERS Safety Report 15575669 (Version 1)
Quarter: 2018Q4

REPORT INFORMATION
  Report Type: Report from Study
  Country: US (occurrence: US)
  Receive Date: 20181101
  Receipt Date: 20181101
  Transmission Date: 20190205
  Serious: Yes (Death)
  Sender: FDA-Public Use
  Company Number: US-PFIZER INC-2018375093

PATIENT
  Age: 46 Year
  Sex: Male
  Weight: 118 kg

DRUGS (3)
  1. PF-06865571 [Suspect]
     Active Substance: INVESTIGATIONAL PRODUCT
     Indication: NON-ALCOHOLIC STEATOHEPATITIS
     Dosage: 1 TABLET, 2X/DAY FOR 14 DAYS
     Route: 048
     Dates: start: 20180829, end: 20180911
  2. FENTANYL CITRATE. [Suspect]
     Active Substance: FENTANYL CITRATE
     Dosage: UNK
  3. COCAINE [Suspect]
     Active Substance: COCAINE
     Dosage: UNK

REACTIONS (1)
  - Toxicity to various agents [Fatal]

NARRATIVE: CASE EVENT DATE: 20180914
